FAERS Safety Report 5085600-0 (Version None)
Quarter: 2006Q3

REPORT INFORMATION
  Report Type: 
  Country: None (occurrence: None)
  Receive Date: 20060822
  Receipt Date: 20060807
  Transmission Date: 20061208
  Serious: Yes (Other)
  Sender: FDA-Public Use
  Company Number: GB-GLAXOSMITHKLINE-B0433348A

PATIENT
  Age: 70 Year
  Sex: Female

DRUGS (7)
  1. AVANDAMET [Suspect]
     Route: 048
     Dates: end: 20060802
  2. ATORVASTATIN CALCIUM [Concomitant]
     Indication: BLOOD CHOLESTEROL INCREASED
     Dosage: 40MG AT NIGHT
     Route: 048
  3. LANSOPRAZOLE [Concomitant]
     Dosage: 15MG PER DAY
     Route: 048
  4. PERINDOPRIL [Concomitant]
     Dosage: 4MG PER DAY
     Route: 048
  5. METFORMIN [Concomitant]
     Dosage: 850MG TWICE PER DAY
     Route: 048
  6. BECLOMETHASONE DIPROPIONATE [Concomitant]
     Indication: ASTHMA
     Dosage: 1PUFF TWICE PER DAY
     Route: 055
  7. ALBUTEROL SPIROS [Concomitant]
     Indication: ASTHMA
     Route: 055

REACTIONS (5)
  - BLOOD IRON DECREASED [None]
  - NORMOCHROMIC NORMOCYTIC ANAEMIA [None]
  - SERUM FERRITIN DECREASED [None]
  - TRANSFERRIN INCREASED [None]
  - VITAMIN B12 DECREASED [None]
